FAERS Safety Report 4351891-4 (Version None)
Quarter: 2004Q2

REPORT INFORMATION
  Report Type: 
  Country: None (occurrence: None)
  Receive Date: 20040503
  Receipt Date: 20040420
  Transmission Date: 20050107
  Serious: Yes (Hospitalization)
  Sender: FDA-Public Use
  Company Number: PHHO2004BE05810

PATIENT
  Age: 64 Year
  Sex: Male
  Weight: 62 kg

DRUGS (2)
  1. SIMULECT [Suspect]
     Indication: LIVER TRANSPLANT
     Dosage: UNK
     Route: 048
  2. NEORAL [Suspect]
     Indication: LIVER TRANSPLANT
     Dosage: 75MG/DAY
     Route: 048
     Dates: start: 20040309, end: 20040419

REACTIONS (2)
  - PLASMAPHERESIS [None]
  - THROMBOCYTOPENIC PURPURA [None]
